FAERS Safety Report 10890776 (Version 2)
Quarter: 2015Q1

REPORT INFORMATION
  Report Type: Spontaneous
  Country: US (occurrence: US)
  Receive Date: 20150305
  Receipt Date: 20150309
  Transmission Date: 20150721
  Serious: Yes (Hospitalization, Other)
  Sender: FDA-Public Use
  Company Number: US-ROXANE LABORATORIES, INC.-2015-RO-00393RO

PATIENT
  Age: 60 Year
  Sex: Female

DRUGS (5)
  1. LITHIUM CARBONATE. [Suspect]
     Active Substance: LITHIUM CARBONATE
     Indication: BIPOLAR I DISORDER
     Route: 065
     Dates: start: 1983
  2. QUETIAPINE FUMARATE. [Suspect]
     Active Substance: QUETIAPINE FUMARATE
     Indication: BIPOLAR I DISORDER
     Dosage: 100 MG
     Route: 065
  3. LITHIUM CARBONATE. [Suspect]
     Active Substance: LITHIUM CARBONATE
     Route: 065
     Dates: start: 2011
  4. LITHIUM CARBONATE. [Suspect]
     Active Substance: LITHIUM CARBONATE
     Dosage: 1200 MG
     Route: 065
     Dates: start: 1985, end: 1988
  5. LITHIUM CARBONATE. [Suspect]
     Active Substance: LITHIUM CARBONATE
     Route: 065
     Dates: start: 1997, end: 2001

REACTIONS (11)
  - Tubulointerstitial nephritis [Unknown]
  - Hypernatraemia [Unknown]
  - Hyperthyroidism [Unknown]
  - Nephrogenic diabetes insipidus [Unknown]
  - Myxofibrosarcoma [Recovered/Resolved with Sequelae]
  - Volvulus [Recovered/Resolved]
  - Hyperparathyroidism primary [Not Recovered/Not Resolved]
  - Chronic kidney disease [Unknown]
  - Sedation [Unknown]
  - Hypothyroidism [Unknown]
  - Postpartum depression [None]

NARRATIVE: CASE EVENT DATE: 200108
